FAERS Safety Report 22539699 (Version 1)
Quarter: 2023Q2

REPORT INFORMATION
  Report Type: Other
  Country: BE (occurrence: BE)
  Receive Date: 20230609
  Receipt Date: 20230609
  Transmission Date: 20230722
  Serious: Yes (Other)
  Sender: FDA-Public Use
  Company Number: BE-ALVOGEN-2023091658

PATIENT
  Age: 84 Year
  Sex: Female

DRUGS (1)
  1. DAPSONE [Suspect]
     Active Substance: DAPSONE
     Indication: Pemphigoid
     Dosage: WAS STARTED ONE MONTH EARLIER BEFORE PRESENTATION.

REACTIONS (5)
  - Toxicity to various agents [Unknown]
  - Drug reaction with eosinophilia and systemic symptoms [Unknown]
  - Haemolytic anaemia [Unknown]
  - Methaemoglobinaemia [Unknown]
  - Off label use [Unknown]
